FAERS Safety Report 10219093 (Version 1)
Quarter: 2014Q2

REPORT INFORMATION
  Report Type: Spontaneous
  Country: US (occurrence: None)
  Receive Date: 20140604
  Receipt Date: 20140604
  Transmission Date: 20141212
  Serious: Yes (Other)
  Sender: FDA-Public Use
  Company Number: None

PATIENT
  Age: 64 Year
  Sex: Female
  Weight: 83.92 kg

DRUGS (1)
  1. MIRALAX 17 G DOW [Suspect]
     Indication: CONSTIPATION
     Dosage: 17 GRAMS  ONCE DAILY  TAKEN BY MOUTH
     Route: 048

REACTIONS (4)
  - Haemorrhoids [None]
  - Abdominal pain [None]
  - Abdominal distension [None]
  - Abdominal pain [None]
